FAERS Safety Report 7096915-9 (Version None)
Quarter: 2010Q4

REPORT INFORMATION
  Report Type: 
  Country: None (occurrence: None)
  Receive Date: 20101111
  Receipt Date: 20091222
  Transmission Date: 20110411
  Serious: No
  Sender: FDA-Public Use
  Company Number: US-KINGPHARMUSA00001-K200901615

PATIENT
  Sex: Female
  Weight: 63.039 kg

DRUGS (9)
  1. FLECTOR [Suspect]
     Indication: ARTHRALGIA
     Dosage: 2 PATCHES, PRN
     Route: 061
     Dates: start: 20091219, end: 20091222
  2. FLECTOR [Suspect]
     Indication: PAIN IN EXTREMITY
  3. LEVOTHYROXINE SODIUM [Concomitant]
     Indication: THYROID DISORDER
     Dosage: UNK
  4. NEXIUM [Concomitant]
     Indication: REFLUX OESOPHAGITIS
     Dosage: UNK
  5. VITAMINS [Concomitant]
     Dosage: UNK
  6. CALCIUM [Concomitant]
     Dosage: UNK
  7. SANCTURA [Concomitant]
     Indication: HYPERTONIC BLADDER
     Dosage: 60 MG, QD
  8. ZOCOR [Concomitant]
     Indication: BLOOD CHOLESTEROL INCREASED
     Dosage: 20 MG, QD
  9. LISINOPRIL [Concomitant]
     Dosage: 10 MG, SINGLE
     Dates: start: 20091218, end: 20091218

REACTIONS (4)
  - ABDOMINAL PAIN [None]
  - DIARRHOEA [None]
  - DYSURIA [None]
  - HEADACHE [None]
